FAERS Safety Report 14685680 (Version 2)
Quarter: 2018Q3

REPORT INFORMATION
  Report Type: Report from Study
  Country: US (occurrence: US)
  Receive Date: 20180327
  Receipt Date: 20180709
  Transmission Date: 20181010
  Serious: Yes (Hospitalization, Other)
  Sender: FDA-Public Use
  Company Number: US-JNJFOC-20171124103

PATIENT
  Age: 86 Year
  Sex: Male

DRUGS (18)
  1. GLUCOSAMINE [Concomitant]
     Active Substance: GLUCOSAMINE
  2. PROCHLORPERAZINE MALEATE. [Concomitant]
     Active Substance: PROCHLORPERAZINE MALEATE
  3. IMBRUVICA [Suspect]
     Active Substance: IBRUTINIB
     Indication: WALDENSTROM^S MACROGLOBULINAEMIA
     Route: 048
     Dates: start: 20180227
  4. ONDANSETRON [Concomitant]
     Active Substance: ONDANSETRON
  5. IMBRUVICA [Suspect]
     Active Substance: IBRUTINIB
     Indication: WALDENSTROM^S MACROGLOBULINAEMIA
     Route: 048
     Dates: start: 20171110, end: 201712
  6. ALLOPURINOL. [Concomitant]
     Active Substance: ALLOPURINOL
  7. VOLTAREN [Concomitant]
     Active Substance: DICLOFENAC SODIUM
  8. PANTOPRAZOLE SODIUM. [Concomitant]
     Active Substance: PANTOPRAZOLE SODIUM
  9. LIDODERM [Concomitant]
     Active Substance: LIDOCAINE
  10. ONGLYZA [Concomitant]
     Active Substance: SAXAGLIPTIN HYDROCHLORIDE
  11. PIOGLITAZONE HCL [Concomitant]
     Active Substance: PIOGLITAZONE
  12. VITAMIN D3 [Concomitant]
     Active Substance: CHOLECALCIFEROL
  13. MULTIVITAMINS [Concomitant]
     Active Substance: VITAMINS
  14. VITAMIN C [Concomitant]
     Active Substance: ASCORBIC ACID
  15. MELATONIN [Concomitant]
     Active Substance: MELATONIN
  16. PEPCID [Concomitant]
     Active Substance: FAMOTIDINE
  17. IMBRUVICA [Suspect]
     Active Substance: IBRUTINIB
     Indication: WALDENSTROM^S MACROGLOBULINAEMIA
     Route: 048
     Dates: start: 20171108, end: 2017
  18. CYANOCOBALAMIN. [Concomitant]
     Active Substance: CYANOCOBALAMIN
     Route: 065

REACTIONS (12)
  - Upper limb fracture [Not Recovered/Not Resolved]
  - Pelvic fracture [Not Recovered/Not Resolved]
  - Bowel movement irregularity [Unknown]
  - Decreased appetite [Unknown]
  - Haematemesis [Unknown]
  - Fatigue [Unknown]
  - Constipation [Unknown]
  - Pneumonia [Unknown]
  - Fall [Not Recovered/Not Resolved]
  - Blood count abnormal [Unknown]
  - Lethargy [Unknown]
  - Asthenia [Unknown]

NARRATIVE: CASE EVENT DATE: 201711
